FAERS Safety Report 5261981-X (Version None)
Quarter: 2007Q1

REPORT INFORMATION
  Report Type: 
  Country: None (occurrence: None)
  Receive Date: 20070308
  Receipt Date: 20070227
  Transmission Date: 20070707
  Serious: Yes (Hospitalization)
  Sender: FDA-Public Use
  Company Number: 430013K07USA

PATIENT
  Age: 25 Year
  Sex: Female

DRUGS (3)
  1. NOVANTRONE [Suspect]
     Indication: MULTIPLE SCLEROSIS
     Dosage: 4 IN 1 YEARS, INTRAVENOUS (NOT OTHERWISE SPECIFIED)
     Route: 042
     Dates: start: 20051212
  2. BACLOFEN [Concomitant]
  3. COUMADIN [Concomitant]

REACTIONS (4)
  - BLOOD DISORDER [None]
  - INFECTION [None]
  - MUSCULOSKELETAL STIFFNESS [None]
  - THROMBOSIS [None]
